FAERS Safety Report 10486548 (Version 2)
Quarter: 2014Q4

REPORT INFORMATION
  Report Type: Spontaneous
  Country: US (occurrence: US)
  Receive Date: 20141001
  Receipt Date: 20141001
  Transmission Date: 20150528
  Serious: No
  Sender: FDA-Public Use
  Company Number: US-KOWA-2013S1001838

PATIENT
  Age: 75 Year
  Sex: Male

DRUGS (16)
  1. COUMADIN [Concomitant]
     Active Substance: WARFARIN SODIUM
  2. OSTEO BI-FLEX [Concomitant]
     Active Substance: CHONDROITIN SULFATE A\GLUCOSAMINE
     Dates: start: 2004
  3. ASPIRIN. [Concomitant]
     Active Substance: ASPIRIN
  4. ALEVE [Concomitant]
     Active Substance: NAPROXEN SODIUM
  5. INSULIN REGULAR /01223201/ [Concomitant]
     Active Substance: INSULIN BEEF
     Dates: start: 201311
  6. ATENOLOL. [Concomitant]
     Active Substance: ATENOLOL
  7. LIVALO [Suspect]
     Active Substance: PITAVASTATIN CALCIUM
     Indication: BLOOD CHOLESTEROL
     Route: 048
     Dates: start: 20130508, end: 201311
  8. LIVALO [Suspect]
     Active Substance: PITAVASTATIN CALCIUM
     Indication: BLOOD CHOLESTEROL
     Route: 048
     Dates: start: 201311, end: 20140214
  9. NORVASC [Concomitant]
     Active Substance: AMLODIPINE BESYLATE
  10. NOVOLOG [Concomitant]
     Active Substance: INSULIN ASPART
     Indication: TYPE 2 DIABETES MELLITUS
     Dates: end: 201311
  11. LEVEMIR [Concomitant]
     Active Substance: INSULIN DETEMIR
     Indication: TYPE 2 DIABETES MELLITUS
     Dates: end: 201311
  12. ALLOPURINOL. [Concomitant]
     Active Substance: ALLOPURINOL
  13. COUMADIN [Concomitant]
     Active Substance: WARFARIN SODIUM
  14. INSULIN N [Concomitant]
     Dates: start: 201311
  15. DIGOXIN. [Concomitant]
     Active Substance: DIGOXIN
  16. DIOVAN [Concomitant]
     Active Substance: VALSARTAN

REACTIONS (9)
  - Blood glucose increased [Not Recovered/Not Resolved]
  - Dermatitis allergic [Not Recovered/Not Resolved]
  - Myalgia [Not Recovered/Not Resolved]
  - Decreased appetite [Not Recovered/Not Resolved]
  - Back pain [Not Recovered/Not Resolved]
  - Asthenia [Not Recovered/Not Resolved]
  - Ageusia [Not Recovered/Not Resolved]
  - Chromaturia [Recovered/Resolved]
  - Glycosylated haemoglobin increased [Not Recovered/Not Resolved]

NARRATIVE: CASE EVENT DATE: 20130522
